FAERS Safety Report 7916515-5 (Version None)
Quarter: 2011Q4

REPORT INFORMATION
  Report Type: 
  Country: None (occurrence: None)
  Receive Date: 20111116
  Receipt Date: 20111104
  Transmission Date: 20120403
  Serious: Yes (Hospitalization, Other)
  Sender: FDA-Public Use
  Company Number: IT-JNJFOC-20111000825

PATIENT
  Sex: Female

DRUGS (5)
  1. PHENYTOIN SODIUM [Suspect]
     Route: 048
  2. PHENYTOIN SODIUM [Suspect]
     Route: 048
  3. TOPAMAX [Suspect]
     Indication: EPILEPSY
     Route: 048
  4. TOPAMAX [Suspect]
     Route: 048
     Dates: start: 20110929, end: 20110929
  5. PHENYTOIN SODIUM [Suspect]
     Indication: EPILEPSY
     Dosage: 30 TABLETS
     Route: 048
     Dates: start: 20110929, end: 20110929

REACTIONS (4)
  - MULTIPLE DRUG OVERDOSE INTENTIONAL [None]
  - ACUTE PSYCHOSIS [None]
  - PANCREATITIS ACUTE [None]
  - DRUG ABUSE [None]
